FAERS Safety Report 9386288 (Version 2)
Quarter: 2013Q3

REPORT INFORMATION
  Report Type: Report from Study
  Country: BR (occurrence: BR)
  Receive Date: 20130708
  Receipt Date: 20130808
  Transmission Date: 20140515
  Serious: Yes (Death, Hospitalization)
  Sender: FDA-Public Use
  Company Number: BR-ROCHE-1245697

PATIENT
  Sex: Female
  Weight: 68 kg

DRUGS (9)
  1. ACTEMRA [Suspect]
     Indication: RHEUMATOID ARTHRITIS
     Route: 065
     Dates: start: 201104
  2. ATENOLOL [Concomitant]
     Indication: HYPERTENSION
  3. ENALAPRIL [Concomitant]
     Indication: HYPERTENSION
  4. PROLOPA [Concomitant]
     Indication: PAIN
  5. PROLOPA [Concomitant]
     Indication: INFLAMMATION
  6. CITROLIN [Concomitant]
     Indication: PAIN
  7. CITROLIN [Concomitant]
     Indication: INFLAMMATION
  8. CYMBALTA [Concomitant]
     Indication: PAIN
  9. CYMBALTA [Concomitant]
     Indication: INFLAMMATION

REACTIONS (3)
  - Gastrointestinal haemorrhage [Fatal]
  - Intervertebral disc protrusion [Not Recovered/Not Resolved]
  - Pain [Not Recovered/Not Resolved]
